FAERS Safety Report 7986597-3 (Version None)
Quarter: 2011Q4

REPORT INFORMATION
  Report Type: 
  Country: None (occurrence: None)
  Receive Date: 20111216
  Receipt Date: 20110802
  Transmission Date: 20120403
  Serious: No
  Sender: FDA-Public Use
  Company Number: US-BRISTOL-MYERS SQUIBB COMPANY-15945090

PATIENT
  Age: 87 Year
  Sex: Male
  Weight: 75 kg

DRUGS (2)
  1. ABILIFY [Suspect]
     Dosage: (1/2 OF A 2MG PILL)
     Route: 048
     Dates: start: 20110101
  2. PLAVIX [Suspect]
     Indication: CARDIAC OPERATION
     Dosage: INTERRUPED IN SEP-OCT2010, RESTARTED AGAIN
     Route: 048
     Dates: start: 20100101

REACTIONS (1)
  - WEIGHT INCREASED [None]
